FAERS Safety Report 6258216-8 (Version None)
Quarter: 2009Q3

REPORT INFORMATION
  Report Type: 
  Country: None (occurrence: None)
  Receive Date: 20090701
  Receipt Date: 20081106
  Transmission Date: 20100115
  Serious: Yes (Other)
  Sender: FDA-Public Use
  Company Number: 08H-163-0315190-00

PATIENT
  Sex: Female

DRUGS (1)
  1. QUELICIN [Suspect]
     Indication: ANAESTHESIA
     Dosage: 80 MG, ONCE, INTRAVENOUS
     Route: 042
     Dates: start: 20081105, end: 20081105

REACTIONS (1)
  - DRUG INEFFECTIVE [None]
